FAERS Safety Report 19151938 (Version 1)
Quarter: 2021Q2

REPORT INFORMATION
  Report Type: Spontaneous
  Country: US (occurrence: US)
  Receive Date: 20210419
  Receipt Date: 20210419
  Transmission Date: 20210717
  Serious: No
  Sender: FDA-Public Use
  Company Number: US-DRREDDYS-USA/USA/21/0134167

PATIENT
  Sex: Male

DRUGS (2)
  1. KRATOM 50 MG [Concomitant]
     Indication: PAIN
  2. BUPRENORPHINE AND NALOXONE SUBLINGUAL FILM 2 MG/0.5 MG AND 8MG/2MG [Suspect]
     Active Substance: BUPRENORPHINE\NALOXONE
     Indication: DRUG USE DISORDER
     Dosage: BUPRENORPHINE/NALOXONE 16 MG/4 MG TOTAL DAILY DOSE

REACTIONS (2)
  - Constipation [Unknown]
  - Constipation [None]
